FAERS Safety Report 8622763 (Version 3)
Quarter: 2012Q4

REPORT INFORMATION
  Report Type: 
  Country: US (occurrence: US)
  Receive Date: 20120619
  Receipt Date: 20121026
  Transmission Date: 20130627
  Serious: Yes (Death, Other)
  Sender: FDA-Public Use
  Company Number: US-CELGENEUS-163-21880-12062473

PATIENT
  Age: 64 Year
  Sex: Male

DRUGS (25)
  1. REVLIMID [Suspect]
     Indication: MULTIPLE MYELOMA WITHOUT MENTION OF REMISSION
     Dosage: 25 Milligram
     Route: 048
     Dates: start: 20111230, end: 2012
  2. CEPHALEXIN [Concomitant]
     Indication: DRUG USE FOR UNKNOWN INDICATION
     Route: 065
  3. LOSARTAN [Concomitant]
     Indication: DRUG USE FOR UNKNOWN INDICATION
     Route: 065
  4. DEXAMETHASONE [Concomitant]
     Indication: DRUG USE FOR UNKNOWN INDICATION
     Dosage: 40 Milligram
     Route: 048
     Dates: start: 20111214
  5. DEXAMETHASONE [Concomitant]
     Dosage: 40 Milligram
     Route: 048
     Dates: start: 20111222
  6. LANTUS SOLOSTAR [Concomitant]
     Indication: DRUG USE FOR UNKNOWN INDICATION
     Dosage: 30 units
     Route: 065
  7. JANTOVEN [Concomitant]
     Indication: DRUG USE FOR UNKNOWN INDICATION
     Dosage: 2.5 Milligram
     Route: 048
     Dates: start: 20110623
  8. AMLODIPINE BESYLATE [Concomitant]
     Indication: DRUG USE FOR UNKNOWN INDICATION
     Dosage: 5 Milligram
     Route: 048
     Dates: start: 20110708
  9. HYDRALAZINE HCL [Concomitant]
     Indication: DRUG USE FOR UNKNOWN INDICATION
     Dosage: 150 Milligram
     Route: 048
     Dates: start: 20101001
  10. LOVASTATIN [Concomitant]
     Indication: DRUG USE FOR UNKNOWN INDICATION
     Dosage: 40 Milligram
     Route: 048
  11. AVAPRO [Concomitant]
     Indication: DRUG USE FOR UNKNOWN INDICATION
     Dosage: 300 Milligram
     Route: 048
  12. K-LOR [Concomitant]
     Indication: DRUG USE FOR UNKNOWN INDICATION
     Dosage: 40 Milliequivalents
     Route: 048
     Dates: start: 20120112
  13. SOMA [Concomitant]
     Indication: DRUG USE FOR UNKNOWN INDICATION
     Dosage: 350 Milligram
     Route: 065
  14. HUMALOG KWIKPEN [Concomitant]
     Indication: DRUG USE FOR UNKNOWN INDICATION
     Dosage: sliding scale
     Route: 065
  15. ALPRAZOLAM [Concomitant]
     Indication: DRUG USE FOR UNKNOWN INDICATION
     Dosage: .25 Milligram
     Route: 065
  16. EFFEXOR XR [Concomitant]
     Indication: DRUG USE FOR UNKNOWN INDICATION
     Dosage: 75 Milligram
     Route: 065
  17. SEROQUEL [Concomitant]
     Indication: DRUG USE FOR UNKNOWN INDICATION
     Dosage: 25 Milligram
     Route: 065
  18. HYDROCODONE/ACETAMINOPHEN [Concomitant]
     Indication: DRUG USE FOR UNKNOWN INDICATION
     Dosage: 10-325mg
     Route: 065
     Dates: start: 20110708
  19. VITAMIN C [Concomitant]
     Indication: DRUG USE FOR UNKNOWN INDICATION
     Dosage: 1000 Milligram
     Route: 065
  20. B COMPLEX-B12 [Concomitant]
     Indication: DRUG USE FOR UNKNOWN INDICATION
     Route: 065
  21. CHEW-12 [Concomitant]
     Indication: DRUG USE FOR UNKNOWN INDICATION
     Route: 065
  22. OXYCONTIN [Concomitant]
     Indication: DRUG USE FOR UNKNOWN INDICATION
     Dosage: 60 Milligram
     Route: 065
     Dates: start: 20101001
  23. METOPROLOL TARTRATE [Concomitant]
     Indication: DRUG USE FOR UNKNOWN INDICATION
     Dosage: 300 Milligram
     Route: 065
     Dates: start: 20110708
  24. RITALIN [Concomitant]
     Indication: DRUG USE FOR UNKNOWN INDICATION
     Dosage: 10 Milligram
     Route: 065
     Dates: start: 20110407
  25. TRAZODONE HCL [Concomitant]
     Indication: DRUG USE FOR UNKNOWN INDICATION
     Dosage: 1-2
     Route: 065
     Dates: start: 20110623

REACTIONS (6)
  - Ventricular fibrillation [Fatal]
  - Hyperkalaemia [Unknown]
  - Neutrophil count decreased [Unknown]
  - Sepsis [Unknown]
  - Abscess limb [Unknown]
  - Hypokalaemia [Unknown]
